FAERS Safety Report 6464023-3 (Version None)
Quarter: 2009Q4

REPORT INFORMATION
  Report Type: 
  Country: None (occurrence: None)
  Receive Date: 20091201
  Receipt Date: 20091120
  Transmission Date: 20100525
  Serious: Yes (Other)
  Sender: FDA-Public Use
  Company Number: US-AMGEN-QUU366371

PATIENT
  Sex: Female
  Weight: 86.3 kg

DRUGS (8)
  1. ENBREL [Suspect]
     Indication: RHEUMATOID ARTHRITIS
     Route: 058
     Dates: start: 20080915, end: 20090714
  2. HUMIRA [Suspect]
  3. ASPIRIN [Concomitant]
  4. BACLOFEN [Concomitant]
  5. LANTUS [Concomitant]
  6. LOVASTATIN [Concomitant]
  7. METFORMIN HCL [Concomitant]
  8. AMLODIPINE [Concomitant]

REACTIONS (3)
  - PLEURAL EFFUSION [None]
  - PNEUMONIA [None]
  - RHEUMATOID ARTHRITIS [None]
